FAERS Safety Report 5174213-8 (Version None)
Quarter: 2006Q4

REPORT INFORMATION
  Report Type: 
  Country: None (occurrence: None)
  Receive Date: 20061214
  Receipt Date: 20061208
  Transmission Date: 20070319
  Serious: Yes (Death)
  Sender: FDA-Public Use
  Company Number: KR-JNJFOC-20061105390

PATIENT
  Sex: Male
  Weight: 38 kg

DRUGS (25)
  1. DURAGESIC-50 [Suspect]
     Indication: PAIN
     Route: 062
  2. CEFTRIAXONE [Concomitant]
     Route: 042
  3. AMIKACIN [Concomitant]
     Route: 042
  4. ANUSOL [Concomitant]
     Route: 042
  5. OLICLINOMEL [Concomitant]
     Route: 042
  6. MULTI-VITAMIN [Concomitant]
     Route: 065
  7. ALPRAZOLAM [Concomitant]
     Route: 048
  8. MEGESTEROL [Concomitant]
     Route: 048
  9. REBAMIPIDE [Concomitant]
     Route: 048
  10. DOXYCYCLINE [Concomitant]
     Route: 048
  11. FORMOTEROL [Concomitant]
     Route: 048
  12. CILNIDIPINE [Concomitant]
     Route: 048
  13. HYDROCHLOROTHIAZIDE [Concomitant]
     Route: 048
  14. ULTRACET [Concomitant]
     Route: 048
  15. SUCRALFATE [Concomitant]
     Route: 048
  16. TRESTAN [Concomitant]
     Route: 048
  17. TRAMADOL HCL [Concomitant]
     Route: 042
  18. TYLENOL [Concomitant]
     Route: 048
  19. MAGNESIUM HYDROXIDE TAB [Concomitant]
     Route: 048
  20. CIPROFLOXACIN [Concomitant]
     Route: 048
  21. KALIMATE [Concomitant]
     Route: 048
  22. TAZOBACTAM [Concomitant]
     Route: 042
  23. FUROSEMIDE [Concomitant]
     Route: 042
  24. SMECTITE [Concomitant]
     Route: 048
  25. IPRATROPIUM BROMIDE [Concomitant]
     Route: 065

REACTIONS (2)
  - LUNG NEOPLASM MALIGNANT [None]
  - RESPIRATORY ARREST [None]
